FAERS Safety Report 5469946-X (Version None)
Quarter: 2007Q3

REPORT INFORMATION
  Report Type: 
  Country: None (occurrence: None)
  Receive Date: 20070927
  Receipt Date: 20070918
  Transmission Date: 20080115
  Serious: Yes (Hospitalization)
  Sender: FDA-Public Use
  Company Number: HQWYE218419SEP07

PATIENT
  Sex: Male

DRUGS (3)
  1. TORISEL [Suspect]
     Indication: RENAL CELL CARCINOMA STAGE UNSPECIFIED
     Route: 042
     Dates: start: 20070828, end: 20070828
  2. TORISEL [Suspect]
     Route: 042
     Dates: start: 20070904, end: 20070904
  3. CALCIUM ACETATE [Concomitant]
     Dosage: 667 MG WITH MEALS
     Route: 048

REACTIONS (2)
  - HYPOTENSION [None]
  - THROMBOCYTOPENIA [None]
